FAERS Safety Report 4833615-7 (Version None)
Quarter: 2005Q4

REPORT INFORMATION
  Report Type: 
  Country: None (occurrence: None)
  Receive Date: 20051121
  Receipt Date: 20051109
  Transmission Date: 20060501
  Serious: Yes (Death, Other)
  Sender: FDA-Public Use
  Company Number: PHBS2005JP16493

PATIENT
  Age: 14 Year
  Sex: Female
  Weight: 60.4 kg

DRUGS (16)
  1. METHOTREXATE [Concomitant]
     Indication: CORD BLOOD TRANSPLANT THERAPY
     Dosage: SHORT-TERM
     Dates: start: 20031217
  2. GEMCITABINE [Concomitant]
     Dates: start: 20030205
  3. GEMCITABINE [Concomitant]
     Dosage: 1000 MG/M2/D
  4. CYCLOSPORINE [Suspect]
     Indication: CORD BLOOD TRANSPLANT THERAPY
     Dosage: 3 MG/KG/D
     Route: 065
     Dates: start: 20031217
  5. CYCLOSPORINE [Suspect]
     Dosage: 3 MGH/KG/D
     Route: 065
     Dates: start: 20040128, end: 20040101
  6. FLUDARABINE [Concomitant]
     Dosage: 40 MG/M2/D
  7. FLUDARABINE [Concomitant]
     Dosage: 40 MG/M2/D
  8. CYCLOPHOSPHAMIDE [Concomitant]
     Dosage: 50 MG/KG/D
  9. CYCLOPHOSPHAMIDE [Concomitant]
     Dosage: 50 MG/KG/D
  10. IRRADIATION [Concomitant]
     Dosage: 2 GY
  11. IRRADIATION [Concomitant]
     Dosage: 2 GY
  12. VP-16 [Concomitant]
     Dosage: 150 MG/M2/D
  13. TACROLIMUS [Concomitant]
  14. METHYLPREDNISOLONE [Concomitant]
     Dosage: 1 MG/KG/D
  15. MYCOPHENOLATE MOFETIL [Concomitant]
  16. SOMATOSTATIN [Concomitant]

REACTIONS (17)
  - AFFECT LABILITY [None]
  - BLINDNESS CORTICAL [None]
  - BLOOD STEM CELL TRANSPLANT FAILURE [None]
  - DIARRHOEA [None]
  - GRAFT VERSUS HOST DISEASE [None]
  - HISTIOCYTOSIS HAEMATOPHAGIC [None]
  - JAUNDICE [None]
  - MALIGNANT NEOPLASM PROGRESSION [None]
  - MALIGNANT PLEURAL EFFUSION [None]
  - PSEUDOMONAS INFECTION [None]
  - RASH [None]
  - REGRESSIVE BEHAVIOUR [None]
  - RESPIRATION ABNORMAL [None]
  - RESPIRATORY TRACT INFECTION [None]
  - SPEECH DISORDER [None]
  - TOXIC INDUCED ENCEPHALOPATHY [None]
  - VISUAL ACUITY REDUCED [None]
